FAERS Safety Report 9562089 (Version 2)
Quarter: 2013Q4

REPORT INFORMATION
  Report Type: Spontaneous
  Country: BG (occurrence: BG)
  Receive Date: 20130927
  Receipt Date: 20131004
  Transmission Date: 20140711
  Serious: Yes (Hospitalization)
  Sender: FDA-Public Use
  Company Number: BG-009507513-1309BGR012583

PATIENT
  Age: 8 Year
  Sex: Male

DRUGS (1)
  1. AERIUS [Suspect]
     Indication: PREMEDICATION
     Dosage: 2.5 MG, ONCE
     Route: 048
     Dates: start: 20130920, end: 20130920

REACTIONS (4)
  - Oropharyngeal pain [Unknown]
  - Urticaria [Unknown]
  - Rash generalised [Not Recovered/Not Resolved]
  - Rash papular [Unknown]
